FAERS Safety Report 13581529 (Version 10)
Quarter: 2018Q1

REPORT INFORMATION
  Report Type: Spontaneous
  Country: CA (occurrence: CA)
  Receive Date: 20170525
  Receipt Date: 20180119
  Transmission Date: 20180508
  Serious: Yes (Death, Hospitalization, Other)
  Sender: FDA-Public Use
  Company Number: CA-CELLTRION INC.-2017CA005812

PATIENT

DRUGS (4)
  1. INFLECTRA [Suspect]
     Active Substance: INFLIXIMAB-DYYB
     Dosage: 700 MG, UNK
     Route: 065
     Dates: start: 20170527
  2. PANTOLOC                           /01263204/ [Concomitant]
     Active Substance: PANTOPRAZOLE SODIUM
     Dosage: 40 MG, ONCE A DAY
     Route: 065
  3. PREDNISONE. [Concomitant]
     Active Substance: PREDNISONE
     Dosage: 40 MG, ONCE A DAY
     Route: 048
  4. INFLECTRA [Suspect]
     Active Substance: INFLIXIMAB-DYYB
     Indication: COLITIS ULCERATIVE
     Dosage: 500 MG, EVERY 0,2,6,WEEKS, THEN EVERY 8 WEEKS
     Route: 042
     Dates: start: 20170420

REACTIONS (13)
  - Pulmonary haemorrhage [Fatal]
  - Weight decreased [Unknown]
  - Respiratory failure [Unknown]
  - Drug effect incomplete [Unknown]
  - Septic shock [Unknown]
  - Deep vein thrombosis [Unknown]
  - Treatment noncompliance [Unknown]
  - Dementia [Unknown]
  - Renal failure [Fatal]
  - Clostridium difficile infection [Unknown]
  - Pneumonia [Unknown]
  - Lower respiratory tract infection [Unknown]
  - C-reactive protein increased [Unknown]

NARRATIVE: CASE EVENT DATE: 20170420
